FAERS Safety Report 17963629 (Version 7)
Quarter: 2021Q2

REPORT INFORMATION
  Report Type: Spontaneous
  Country: GB (occurrence: GB)
  Receive Date: 20200630
  Receipt Date: 20210629
  Transmission Date: 20210717
  Serious: Yes (Other)
  Sender: FDA-Public Use
  Company Number: GB-VIIV HEALTHCARE LIMITED-GB2020110645

PATIENT
  Age: 58 Year
  Sex: Male

DRUGS (18)
  1. ISENTRESS [Suspect]
     Active Substance: RALTEGRAVIR POTASSIUM
     Dosage: 1 DF, QD (STRENGTH: 400 (UNITS NOT PROVIDED), ONCE DAILY )
     Route: 048
  2. ISENTRESS [Suspect]
     Active Substance: RALTEGRAVIR POTASSIUM
     Dosage: UNK, QD (QD (ONCE A DAY?BID))
     Route: 065
  3. RALTEGRAVIR POTASSIUM [Suspect]
     Active Substance: RALTEGRAVIR POTASSIUM
     Dosage: 2 DF, BID (2 DOSE QD (UNK UNK, BID))
     Route: 065
  4. RALTEGRAVIR. [Suspect]
     Active Substance: RALTEGRAVIR
     Dosage: UNK, QD (UNK UNK, BID  )
     Route: 065
  5. NEVIRAPINE. [Suspect]
     Active Substance: NEVIRAPINE
     Dosage: 1 DF, QD
     Route: 065
  6. RALTEGRAVIR. [Suspect]
     Active Substance: RALTEGRAVIR
     Dosage: 2 DF, BID
     Route: 065
  7. LAMIVUDINE HIV [Suspect]
     Active Substance: LAMIVUDINE
     Dosage: 1 DF, QD (1 DOSAGE FORM, ONCE A DAY)
     Route: 048
  8. ISENTRESS [Suspect]
     Active Substance: RALTEGRAVIR POTASSIUM
     Indication: PRODUCT USED FOR UNKNOWN INDICATION
     Dosage: 400 MG, QD ( 400 MILLIGRAM DAILY)
     Route: 048
  9. RALTEGRAVIR POTASSIUM [Suspect]
     Active Substance: RALTEGRAVIR POTASSIUM
     Dosage: 2 DF, QD  (2 DF, QD (2 ANTI?XA IU/ML, QD))
     Route: 065
  10. RALTEGRAVIR POTASSIUM [Suspect]
     Active Substance: RALTEGRAVIR POTASSIUM
     Dosage: 2 DF
     Route: 065
  11. NEVIRAPINE. [Suspect]
     Active Substance: NEVIRAPINE
     Indication: PRODUCT USED FOR UNKNOWN INDICATION
     Dosage: 200 MG, QD (200 MILLIGRAM, QD (200 MILLIGRAM, ONCE A DAY)
     Route: 065
  12. NEVIRAPINE. [Suspect]
     Active Substance: NEVIRAPINE
     Dosage: 1 DF, QD (STRENGTH: 200 (UNITS NOT PROVIDED), ONCE DAILY)
     Route: 065
  13. RALTEGRAVIR. [Suspect]
     Active Substance: RALTEGRAVIR
     Indication: PRODUCT USED FOR UNKNOWN INDICATION
     Dosage: 2 DF, QD
     Route: 065
  14. LAMIVUDINE HIV [Suspect]
     Active Substance: LAMIVUDINE
     Dosage: 1 DF, QD ((STRENGTH:300(UNITS NOT PROVIDED), ONCE DAILY)
     Route: 065
  15. NEVIRAPINE. [Suspect]
     Active Substance: NEVIRAPINE
     Dosage: 200 MG, QD STRENGTH: 200 (UNITS NOT PROVIDED), ONCE DAILY)
     Route: 065
  16. RALTEGRAVIR POTASSIUM [Suspect]
     Active Substance: RALTEGRAVIR POTASSIUM
     Indication: PRODUCT USED FOR UNKNOWN INDICATION
     Dosage: 2 DF, QD (PKGID=UNKNOWN )
     Route: 065
  17. LAMIVUDINE HIV [Suspect]
     Active Substance: LAMIVUDINE
     Indication: PRODUCT USED FOR UNKNOWN INDICATION
     Dosage: 300 MG, QD (300 MILLIGRAM, ONCE A DAY)
     Route: 065
  18. VIRAMUNE [Suspect]
     Active Substance: NEVIRAPINE
     Indication: PRODUCT USED FOR UNKNOWN INDICATION
     Dosage: 200 MG, QD UNK
     Route: 065

REACTIONS (8)
  - Delirium [Unknown]
  - Fatigue [Unknown]
  - Pyrexia [Unknown]
  - Malaise [Unknown]
  - Asthenia [Unknown]
  - Cough [Unknown]
  - Hallucination [Unknown]
  - Suspected COVID-19 [Unknown]

NARRATIVE: CASE EVENT DATE: 202001
